FAERS Safety Report 24316804 (Version 1)
Quarter: 2024Q3

REPORT INFORMATION
  Report Type: Report from Study
  Country: GB (occurrence: GB)
  Receive Date: 20240913
  Receipt Date: 20240913
  Transmission Date: 20241017
  Serious: Yes (Other)
  Sender: TEVA
  Company Number: GB-TEVA-VS-3241782

PATIENT
  Age: 65 Year
  Sex: Female

DRUGS (1)
  1. AJOVY [Suspect]
     Active Substance: FREMANEZUMAB-VFRM
     Indication: Headache
     Route: 058

REACTIONS (5)
  - Thrombosis [Recovered/Resolved with Sequelae]
  - Headache [Recovered/Resolved with Sequelae]
  - Migraine with aura [Recovered/Resolved with Sequelae]
  - Product use in unapproved indication [Unknown]
  - Vertigo [Recovered/Resolved with Sequelae]
